FAERS Safety Report 10741666 (Version 2)
Quarter: 2015Q1

REPORT INFORMATION
  Report Type: Spontaneous
  Country: SE (occurrence: SE)
  Receive Date: 20150127
  Receipt Date: 20150202
  Transmission Date: 20150721
  Serious: Yes (Disabling)
  Sender: FDA-Public Use
  Company Number: SE-AMGEN-SWESP2015006218

PATIENT
  Age: 75 Year
  Sex: Male

DRUGS (24)
  1. XOFIGO [Concomitant]
     Active Substance: RADIUM RA-223 DICHLORIDE
     Dosage: 1000 KBQ/ML
  2. STILNOCT [Concomitant]
     Active Substance: ZOLPIDEM TARTRATE
     Dosage: 5 MG, UNK
  3. COCILLANA                          /00270901/ [Concomitant]
     Dosage: UNK
  4. ENANTON [Concomitant]
     Dosage: 11.25 MG, UNK
  5. CILAXORAL [Concomitant]
     Dosage: 7.5 MG/ML, UNK
     Route: 048
  6. POSTAFEN                           /00060202/ [Concomitant]
     Active Substance: BUCLIZINE HYDROCHLORIDE
     Dosage: 25 MG, UNK
  7. BETAPRED [Concomitant]
     Active Substance: BETAMETHASONE SODIUM PHOSPHATE
  8. PRIMPERAN [Concomitant]
     Active Substance: METOCLOPRAMIDE HYDROCHLORIDE
     Dosage: 10 MG, UNK
  9. DOLCONTIN                          /00036302/ [Concomitant]
     Active Substance: MORPHINE
  10. PROPYLESS [Concomitant]
     Dosage: 200 MG/G, UNK
  11. LAXIDO                             /07474401/ [Concomitant]
     Dosage: UNK
     Route: 048
  12. XGEVA [Suspect]
     Active Substance: DENOSUMAB
     Indication: PROSTATE CANCER
     Dosage: 120 MG, QMO
     Route: 058
     Dates: start: 20140108
  13. PEVARYL                            /00418501/ [Concomitant]
     Dosage: 1 %, UNK
     Route: 061
  14. MOVICOL                            /01749801/ [Concomitant]
     Dosage: UNK
     Route: 048
  15. NOVOMIX [Concomitant]
     Active Substance: INSULIN ASPART
     Dosage: 30 IU, (100 UNITS/ML)
  16. BETOLVEX                           /00056201/ [Concomitant]
     Dosage: 1 MG, UNK
  17. GABAPENTIN ACTAVIS [Concomitant]
     Active Substance: GABAPENTIN
     Dosage: 100 MG, UNK
  18. ONDANSETRON B BRAUN [Concomitant]
     Dosage: 2 MG/ML, UNK
  19. TAVEGYL [Concomitant]
     Active Substance: CLEMASTINE FUMARATE
     Dosage: 1 MG/ML, UNK
  20. MORFIN MEDA [Concomitant]
     Active Substance: MORPHINE SULFATE
     Dosage: UNK
  21. CALCICHEW D3 FORTE [Concomitant]
     Active Substance: CALCIUM\CHOLECALCIFEROL
     Dosage: 1 DF, (500MG/800IU)
  22. ZANTAC [Concomitant]
     Active Substance: RANITIDINE HYDROCHLORIDE
     Dosage: 25 MG/ML, UNK
  23. LOPERAMID MYLAN [Concomitant]
     Active Substance: LOPERAMIDE
     Dosage: 2 MG, UNK
  24. XYLOCAIN                           /00033401/ [Concomitant]
     Dosage: 2 %, UNK

REACTIONS (1)
  - Osteonecrosis of jaw [Not Recovered/Not Resolved]

NARRATIVE: CASE EVENT DATE: 20141223
